FAERS Safety Report 21611247 (Version 1)
Quarter: 2022Q4

REPORT INFORMATION
  Report Type: Spontaneous
  Country: US (occurrence: US)
  Receive Date: 20221117
  Receipt Date: 20221117
  Transmission Date: 20230113
  Serious: No
  Sender: FDA-Public Use
  Company Number: US-SA-SAC20221116000475

PATIENT
  Sex: Female
  Weight: 56.69 kg

DRUGS (27)
  1. DUPIXENT [Suspect]
     Active Substance: DUPILUMAB
     Indication: Nasal polyps
     Dosage: 300 MG, QOW
     Route: 058
  2. DROXIDOPA [Concomitant]
     Active Substance: DROXIDOPA
  3. VITAMIN C [Concomitant]
     Active Substance: ASCORBIC ACID
  4. TIZANIDINE HYDROCHLORIDE [Concomitant]
     Active Substance: TIZANIDINE HYDROCHLORIDE
  5. SERTRALINE HYDROCHLORIDE [Concomitant]
     Active Substance: SERTRALINE HYDROCHLORIDE
  6. RYTARY [Concomitant]
     Active Substance: CARBIDOPA\LEVODOPA
  7. PROAIR HFA [Concomitant]
     Active Substance: ALBUTEROL SULFATE
  8. METHIMAZOLE [Concomitant]
     Active Substance: METHIMAZOLE
  9. MELATONIN [Concomitant]
     Active Substance: MELATONIN
  10. HIZENTRA [Concomitant]
     Active Substance: HUMAN IMMUNOGLOBULIN G
  11. ALLEGRA ALLERGY [Concomitant]
     Active Substance: FEXOFENADINE HYDROCHLORIDE
  12. ESTRADIOL [Concomitant]
     Active Substance: ESTRADIOL
  13. CRANBERRY [Concomitant]
     Active Substance: CRANBERRY
  14. COLACE [Concomitant]
     Active Substance: DOCUSATE SODIUM
  15. MIDODRINE HYDROCHLORIDE [Concomitant]
     Active Substance: MIDODRINE HYDROCHLORIDE
  16. CALCIUM\CHOLECALCIFEROL [Concomitant]
     Active Substance: CALCIUM\CHOLECALCIFEROL
  17. CLONAZEPAM [Concomitant]
     Active Substance: CLONAZEPAM
  18. BUDESONIDE [Concomitant]
     Active Substance: BUDESONIDE
  19. BREO ELLIPTA [Concomitant]
     Active Substance: FLUTICASONE FUROATE\VILANTEROL TRIFENATATE
  20. AMITIZA [Concomitant]
     Active Substance: LUBIPROSTONE
  21. AMANTADINE [Concomitant]
     Active Substance: AMANTADINE
  22. FLUDROCORTISONE ACETATE [Concomitant]
     Active Substance: FLUDROCORTISONE ACETATE
  23. B12 ACTIVE [Concomitant]
  24. MELATONIN [Concomitant]
     Active Substance: MELATONIN
  25. PROBIOTICS NOS [Concomitant]
     Active Substance: PROBIOTICS NOS
  26. AUVI-Q [Concomitant]
     Active Substance: EPINEPHRINE
  27. MODERNA COVID-19 VACCINE [Concomitant]
     Active Substance: ELASOMERAN
     Indication: Immunisation

REACTIONS (1)
  - Bronchitis [Not Recovered/Not Resolved]

NARRATIVE: CASE EVENT DATE: 20220101
